FAERS Safety Report 6447948-4 (Version None)
Quarter: 2009Q4

REPORT INFORMATION
  Report Type: 
  Country: None (occurrence: None)
  Receive Date: 20091120
  Receipt Date: 20091117
  Transmission Date: 20100525
  Serious: Yes (Life-Threatening, Hospitalization)
  Sender: FDA-Public Use
  Company Number: DE-ABBOTT-09P-062-0607733-00

PATIENT
  Sex: Female
  Weight: 75 kg

DRUGS (10)
  1. HUMIRA [Suspect]
     Indication: RHEUMATOID ARTHRITIS
     Route: 058
     Dates: start: 20080721, end: 20081215
  2. HUMIRA [Suspect]
     Route: 058
     Dates: start: 20090706, end: 20091001
  3. ARAVA [Concomitant]
     Indication: RHEUMATOID ARTHRITIS
     Route: 048
     Dates: start: 20050601, end: 20091104
  4. PREDNISOLONE [Concomitant]
     Indication: RHEUMATOID ARTHRITIS
     Dosage: 10-5 MG DAILY
     Route: 048
     Dates: start: 20041221
  5. ETORICOXIB [Concomitant]
     Indication: RHEUMATOID ARTHRITIS
  6. AMLODIPINE [Concomitant]
     Indication: DRUG USE FOR UNKNOWN INDICATION
     Route: 048
  7. PIOGLITAZONE [Concomitant]
     Indication: DIABETES MELLITUS
  8. IPROSARTAN [Concomitant]
     Indication: DRUG USE FOR UNKNOWN INDICATION
  9. NOVAMINSULFON [Concomitant]
     Indication: DRUG USE FOR UNKNOWN INDICATION
     Route: 048
  10. CALCIUM [Concomitant]
     Indication: OSTEOPOROSIS
     Route: 048

REACTIONS (6)
  - GASTRITIS [None]
  - GASTROENTERITIS PSEUDOMONAS [None]
  - HAEMOTHORAX [None]
  - OESOPHAGEAL CANDIDIASIS [None]
  - PNEUMONIA STREPTOCOCCAL [None]
  - SPINAL COMPRESSION FRACTURE [None]
